FAERS Safety Report 14849710 (Version 5)
Quarter: 2020Q1

REPORT INFORMATION
  Report Type: Spontaneous
  Country: FR (occurrence: FR)
  Receive Date: 20180504
  Receipt Date: 20200228
  Transmission Date: 20200409
  Serious: Yes (Death, Hospitalization)
  Sender: FDA-Public Use
  Company Number: FR-ROCHE-2119035

PATIENT
  Age: 75 Year
  Sex: Female
  Weight: 60 kg

DRUGS (6)
  1. RYTHMOL [Suspect]
     Active Substance: PROPAFENONE HYDROCHLORIDE
     Indication: ARRHYTHMIA
     Dosage: 300 MG
     Route: 048
     Dates: start: 201610
  2. INIPOMP [Concomitant]
     Active Substance: PANTOPRAZOLE SODIUM
  3. VALIUM [Suspect]
     Active Substance: DIAZEPAM
     Indication: ANAESTHESIA
     Dosage: 10 MG/2 ML
     Route: 048
     Dates: start: 20180324, end: 20180324
  4. ATARAX [Interacting]
     Active Substance: HYDROXYZINE HYDROCHLORIDE
     Indication: ANAESTHESIA
     Route: 048
     Dates: start: 20180324, end: 20180324
  5. CRESTOR [Concomitant]
     Active Substance: ROSUVASTATIN CALCIUM
  6. SEPTANEST [Suspect]
     Active Substance: ARTICAINE HYDROCHLORIDE\EPINEPHRINE BITARTRATE
     Indication: DENTAL LOCAL ANAESTHESIA
     Route: 004
     Dates: start: 20180324

REACTIONS (5)
  - Cardio-respiratory arrest [Fatal]
  - Drug interaction [Fatal]
  - Cardiac arrest [Fatal]
  - Contraindicated product administered [Fatal]
  - Intentional overdose [Fatal]

NARRATIVE: CASE EVENT DATE: 20180324
